FAERS Safety Report 16084874 (Version 1)
Quarter: 2019Q2

REPORT INFORMATION
  Report Type: Spontaneous
  Country: PR (occurrence: PR)
  Receive Date: 20190318
  Receipt Date: 20190318
  Transmission Date: 20190711
  Serious: No
  Sender: FDA-Public Use
  Company Number: None

PATIENT
  Age: 57 Year
  Sex: Male
  Weight: 85.5 kg

DRUGS (1)
  1. VANCOMYCIN [Suspect]
     Active Substance: VANCOMYCIN
     Indication: ARTHRITIS BACTERIAL
     Dosage: ?          OTHER FREQUENCY:EVERY TWELVE HOURS;?
     Route: 041
     Dates: start: 20190221, end: 20190228

REACTIONS (5)
  - Discomfort [None]
  - Pruritus [None]
  - Ear disorder [None]
  - Lip oedema [None]
  - Rash [None]

NARRATIVE: CASE EVENT DATE: 20190228
